FAERS Safety Report 7133342-X (Version None)
Quarter: 2010Q4

REPORT INFORMATION
  Report Type: 
  Country: None (occurrence: None)
  Receive Date: 20101202
  Receipt Date: 20101119
  Transmission Date: 20110411
  Serious: Yes (Hospitalization)
  Sender: FDA-Public Use
  Company Number: US-WATSON-2010-15214

PATIENT
  Age: 9 Year
  Sex: Male

DRUGS (2)
  1. DIPHENHYDRAMINE HCL [Suspect]
     Indication: NASAL CONGESTION
     Dosage: UNK
     Route: 048
  2. DIPHENHYDRAMINE HCL [Suspect]
     Indication: INSOMNIA

REACTIONS (1)
  - DRUG SCREEN FALSE POSITIVE [None]
